FAERS Safety Report 10398582 (Version 2)
Quarter: 2014Q3

REPORT INFORMATION
  Report Type: Report from Study
  Country: AR (occurrence: AR)
  Receive Date: 20140821
  Receipt Date: 20140915
  Transmission Date: 20150326
  Serious: Yes (Hospitalization, Other)
  Sender: FDA-Public Use
  Company Number: PHHY2014AR104242

PATIENT
  Sex: Male

DRUGS (2)
  1. EXFORGE [Suspect]
     Active Substance: AMLODIPINE BESYLATE\VALSARTAN
     Indication: HYPERTENSION
     Dosage: 1 DF (VALS 160 MG, AMLO 5MG) DAILY
     Route: 048
  2. GALVUS [Concomitant]
     Active Substance: VILDAGLIPTIN
     Indication: TYPE 2 DIABETES MELLITUS
     Dosage: UNK UKN, UNK
     Route: 048
     Dates: start: 201408

REACTIONS (2)
  - Metastases to central nervous system [Recovering/Resolving]
  - Neoplasm [Recovering/Resolving]
